FAERS Safety Report 7330773-X (Version None)
Quarter: 2011Q1

REPORT INFORMATION
  Report Type: 
  Country: None (occurrence: None)
  Receive Date: 20110225
  Receipt Date: 20110225
  Transmission Date: 20110831
  Serious: Yes (Other)
  Sender: FDA-Public Use
  Company Number: None

PATIENT
  Age: 14 Year
  Sex: Female
  Weight: 43.0917 kg

DRUGS (1)
  1. CHILDREN'S IBUPROFEN [Suspect]
     Indication: HEADACHE
     Dosage: 300MG X1 PO
     Route: 048

REACTIONS (3)
  - LIP SWELLING [None]
  - SWOLLEN TONGUE [None]
  - SWELLING FACE [None]
